FAERS Safety Report 8130868-7 (Version None)
Quarter: 2012Q1

REPORT INFORMATION
  Report Type: 
  Country: None (occurrence: None)
  Receive Date: 20120213
  Receipt Date: 20120207
  Transmission Date: 20120608
  Serious: No
  Sender: FDA-Public Use
  Company Number: US-PFIZER INC-2012033579

PATIENT
  Sex: Male

DRUGS (3)
  1. FINASTERIDE [Concomitant]
     Dosage: UNK
  2. LIPITOR [Suspect]
     Dosage: UNK
  3. ATORVASTATIN CALCIUM [Suspect]
     Dosage: 10 MG, UNK
     Dates: start: 20120120

REACTIONS (1)
  - RASH [None]
